FAERS Safety Report 8396160 (Version 3)
Quarter: 2012Q4

REPORT INFORMATION
  Report Type: 
  Country: US (occurrence: US)
  Receive Date: 20120208
  Receipt Date: 20121217
  Transmission Date: 20130627
  Serious: Yes (Other)
  Sender: FDA-Public Use
  Company Number: US-BAYER-2012-009940

PATIENT
  Age: 28 Year
  Sex: Female
  Weight: 65.76 kg

DRUGS (2)
  1. MIRENA [Suspect]
     Indication: CONTRACEPTION
     Dosage: 20 mcg/24hr, CONT
     Route: 015
     Dates: start: 200506
  2. MIRENA [Suspect]
     Indication: CONTRACEPTION
     Dosage: 20 mcg/24hr, CONT
     Route: 015
     Dates: start: 20100621, end: 20111221

REACTIONS (20)
  - Staphylococcal infection [Not Recovered/Not Resolved]
  - Hyperhidrosis [None]
  - Skin odour abnormal [None]
  - Folliculitis [None]
  - Acne [None]
  - Fatigue [None]
  - Back pain [None]
  - Headache [None]
  - Breast cyst [None]
  - Breast mass [None]
  - Gastrooesophageal reflux disease [None]
  - Vomiting [None]
  - Stress [None]
  - Malaise [None]
  - Depression [None]
  - Mood swings [None]
  - Leukocytosis [Not Recovered/Not Resolved]
  - Bronchitis [Not Recovered/Not Resolved]
  - Staphylococcal skin infection [Not Recovered/Not Resolved]
  - Adverse event [None]
